FAERS Safety Report 6888532-8 (Version None)
Quarter: 2010Q3

REPORT INFORMATION
  Report Type: 
  Country: None (occurrence: None)
  Receive Date: 20100730
  Receipt Date: 20100719
  Transmission Date: 20110219
  Serious: Yes (Hospitalization)
  Sender: FDA-Public Use
  Company Number: US-WATSON-2010-09937

PATIENT
  Age: 2 Year
  Sex: Male

DRUGS (1)
  1. IBUPROFEN TABLETS [Suspect]
     Indication: ACCIDENTAL EXPOSURE
     Dosage: UNK
     Route: 048

REACTIONS (2)
  - ACCIDENTAL EXPOSURE [None]
  - PYLORIC STENOSIS [None]
